APPROVED DRUG PRODUCT: DOXEPIN HYDROCHLORIDE
Active Ingredient: DOXEPIN HYDROCHLORIDE
Strength: EQ 150MG BASE
Dosage Form/Route: CAPSULE;ORAL
Application: A210140 | Product #001 | TE Code: BX
Applicant: ZYDUS LIFESCIENCES LTD
Approved: Mar 21, 2023 | RLD: No | RS: No | Type: RX